FAERS Safety Report 8356656-4 (Version None)
Quarter: 2012Q2

REPORT INFORMATION
  Report Type: 
  Country: None (occurrence: None)
  Receive Date: 20120514
  Receipt Date: 20120509
  Transmission Date: 20120825
  Serious: Yes (Hospitalization)
  Sender: FDA-Public Use
  Company Number: PHHY2012AU036202

PATIENT
  Age: 85 Year
  Sex: Male

DRUGS (3)
  1. PANAMAX [Concomitant]
     Dosage: UNK UKN, UNK
     Route: 048
  2. ZOLEDRONOC ACID [Suspect]
     Indication: OSTEOPOROSIS
     Dosage: 5 MG/100ML
     Route: 042
     Dates: start: 20111031
  3. ACETAMINOPHEN W/ CODEINE [Concomitant]
     Dosage: UNK UKN, UNK

REACTIONS (3)
  - GASTRIC ULCER HELICOBACTER [None]
  - ATRIAL FIBRILLATION [None]
  - RASH [None]
